FAERS Safety Report 12413434 (Version 2)
Quarter: 2020Q1

REPORT INFORMATION
  Report Type: Spontaneous
  Country: FR (occurrence: FR)
  Receive Date: 20160527
  Receipt Date: 20200318
  Transmission Date: 20200409
  Serious: Yes (Hospitalization)
  Sender: FDA-Public Use
  Company Number: PHHY2016FR071072

PATIENT
  Age: 27 Year
  Sex: Male

DRUGS (22)
  1. PIPERACILLIN AND TAZOBACTAM [Suspect]
     Active Substance: PIPERACILLIN SODIUM\TAZOBACTAM SODIUM
     Indication: EVIDENCE BASED TREATMENT
  2. MEROPENEM. [Concomitant]
     Active Substance: MEROPENEM
     Indication: APLASTIC ANAEMIA
     Dosage: 3 G, DAILY
     Route: 065
     Dates: start: 2015
  3. MEROPENEM. [Concomitant]
     Active Substance: MEROPENEM
     Indication: EVIDENCE BASED TREATMENT
  4. LEVOFLOXACIN. [Suspect]
     Active Substance: LEVOFLOXACIN
     Indication: APLASTIC ANAEMIA
     Dosage: UNK
     Route: 065
     Dates: start: 201509
  5. VORICONAZOLE. [Suspect]
     Active Substance: VORICONAZOLE
     Indication: GEOTRICHUM INFECTION
     Dosage: 4 MG/KG, 2X/DAY (FIRST DAY)
     Route: 042
     Dates: start: 2015, end: 2015
  6. CASPOFUNGIN [Concomitant]
     Active Substance: CASPOFUNGIN
     Dosage: 50 MG, QD
     Route: 065
     Dates: start: 2015, end: 2015
  7. ALEMTUZUMAB [Concomitant]
     Active Substance: ALEMTUZUMAB
     Indication: BONE MARROW CONDITIONING REGIMEN
     Dosage: 20 MG, UNK (FROM DAY 36 TO 39)
     Route: 042
     Dates: start: 2015
  8. VORICONAZOLE. [Suspect]
     Active Substance: VORICONAZOLE
     Dosage: 6 MG/KG2 (6 MG/KG, 2X/DAY (FIRST DAY)
     Route: 042
     Dates: start: 2015, end: 2015
  9. PIPERACILLIN AND TAZOBACTAM [Suspect]
     Active Substance: PIPERACILLIN SODIUM\TAZOBACTAM SODIUM
     Indication: APLASTIC ANAEMIA
  10. AMIKACIN. [Suspect]
     Active Substance: AMIKACIN
     Indication: APLASTIC ANAEMIA
  11. AMIKACIN. [Suspect]
     Active Substance: AMIKACIN
     Indication: EVIDENCE BASED TREATMENT
  12. MEROPENEM. [Concomitant]
     Active Substance: MEROPENEM
     Indication: PYREXIA
  13. CYCLOPHOSPHAMIDE. [Concomitant]
     Active Substance: CYCLOPHOSPHAMIDE
     Indication: BONE MARROW CONDITIONING REGIMEN
     Dosage: 300 MG/M2, UNK (FROM DAYS 35 TO 38)
     Route: 042
     Dates: start: 2015
  14. FLUDARABINE [Concomitant]
     Active Substance: FLUDARABINE PHOSPHATE
     Indication: BONE MARROW CONDITIONING REGIMEN
     Dosage: 30 MG/M2, UNK (FROM DAY 35 TO 38)
     Route: 065
     Dates: start: 2015
  15. PIPERACILLIN AND TAZOBACTAM [Suspect]
     Active Substance: PIPERACILLIN SODIUM\TAZOBACTAM SODIUM
     Indication: FEBRILE NEUTROPENIA
     Dosage: 16 G, DAILY  (ARTED ON DAY 5, FOR)
     Route: 065
     Dates: start: 201509, end: 201509
  16. PREDNISONE. [Suspect]
     Active Substance: PREDNISONE
     Indication: FEBRILE NEUTROPENIA
     Dosage: 40 MG, QD (STARTED ON DAY 12)
     Route: 048
     Dates: start: 201509, end: 201509
  17. AMIKACIN. [Suspect]
     Active Substance: AMIKACIN
     Indication: FEBRILE NEUTROPENIA
     Dosage: 15 MG/KG, QD  (STARTED ON DAY 5)
     Route: 065
     Dates: start: 201509
  18. CYCLOSPORINE. [Concomitant]
     Active Substance: CYCLOSPORINE
     Indication: GRAFT VERSUS HOST DISEASE
     Dosage: UNK (STARTED ON DAY 41)
     Route: 065
     Dates: start: 2015
  19. PREDNISONE. [Suspect]
     Active Substance: PREDNISONE
     Indication: APLASTIC ANAEMIA
  20. VORICONAZOLE. [Suspect]
     Active Substance: VORICONAZOLE
     Dosage: UNK
     Route: 048
     Dates: start: 2015, end: 2015
  21. AMPHOTERICIN B, LIPOSOME [Concomitant]
     Active Substance: AMPHOTERICIN B
     Indication: GEOTRICHUM INFECTION
     Dosage: 3 MG/KG/DAY (LIPOSOMAL)
     Route: 065
     Dates: start: 2015, end: 2015
  22. CASPOFUNGIN [Concomitant]
     Active Substance: CASPOFUNGIN
     Indication: ANTIFUNGAL TREATMENT
     Dosage: 70 MG, UNK (LOADING DOSE)
     Route: 065
     Dates: start: 2015, end: 2015

REACTIONS (3)
  - Geotrichum infection [Recovered/Resolved]
  - Nausea [Unknown]
  - Vomiting [Unknown]
